FAERS Safety Report 10194986 (Version 2)
Quarter: 2014Q2

REPORT INFORMATION
  Report Type: Spontaneous
  Country: FI (occurrence: FI)
  Receive Date: 20140526
  Receipt Date: 20140529
  Transmission Date: 20141212
  Serious: Yes (Hospitalization, Other)
  Sender: FDA-Public Use
  Company Number: FI-PFIZER INC-2014138485

PATIENT
  Age: 66 Year
  Sex: Female

DRUGS (10)
  1. TREXAN [Suspect]
     Indication: RHEUMATOID ARTHRITIS
     Dosage: 20 MG, WEEKLY
     Route: 048
     Dates: start: 2003, end: 2013
  2. TREXAN [Suspect]
     Dosage: 10 MG, WEEKLY
     Route: 048
     Dates: start: 201311, end: 20140306
  3. SALAZOPYRIN EN [Suspect]
     Indication: RHEUMATOID ARTHRITIS
     Dosage: 2 G, DAILY
     Route: 048
     Dates: start: 2001, end: 20140306
  4. OXIKLORIN [Suspect]
     Indication: RHEUMATOID ARTHRITIS
     Dosage: 300 MG X 1 X5 DAYS/WEEK
     Route: 048
     Dates: start: 2003, end: 2014
  5. TRIPTYL [Concomitant]
     Dosage: 25 MG, 1X/DAY
  6. KLOTRIPTYL MITE [Concomitant]
     Dosage: UNKNOWN DOSE DAILY
  7. VOLTAREN RAPID [Concomitant]
     Dosage: 50 (UNITS NOT SPECIFIED), PER NEEDED
  8. FOLIC ACID [Concomitant]
     Dosage: 5 MG, WEEKLY
  9. ORLOC [Concomitant]
     Dosage: 2.5 MG, 1X/DAY
  10. SIMVASTATIN [Concomitant]
     Dosage: 20 MG, 1X/DAY
     Route: 065

REACTIONS (3)
  - Lung disorder [Recovering/Resolving]
  - Transaminases increased [Recovering/Resolving]
  - Dyspnoea [Recovering/Resolving]
